FAERS Safety Report 16788330 (Version 1)
Quarter: 2019Q3

REPORT INFORMATION
  Report Type: Spontaneous
  Country: GB (occurrence: GB)
  Receive Date: 20190910
  Receipt Date: 20190910
  Transmission Date: 20191005
  Serious: Yes (Other)
  Sender: FDA-Public Use
  Company Number: GB-TEVA-2019-GB-1105132

PATIENT
  Age: 85 Year
  Sex: Female

DRUGS (3)
  1. LEVOFLOXACIN. [Suspect]
     Active Substance: LEVOFLOXACIN
     Route: 065
  2. AMIODARONE [Suspect]
     Active Substance: AMIODARONE
     Indication: ATRIAL FIBRILLATION
     Route: 065
  3. PREDNISOLONE. [Suspect]
     Active Substance: PREDNISOLONE
     Indication: THYROIDITIS
     Dosage: 40 MG
     Route: 065

REACTIONS (5)
  - Thyroiditis [Unknown]
  - Adverse drug reaction [Unknown]
  - Mycobacterium chelonae infection [Unknown]
  - Oedema peripheral [Recovering/Resolving]
  - Myopathy [Unknown]
